FAERS Safety Report 10418982 (Version 1)
Quarter: 2014Q2

REPORT INFORMATION
  Report Type: Spontaneous
  Country: US (occurrence: None)
  Receive Date: 20140625
  Receipt Date: 20140625
  Transmission Date: 20141212
  Serious: No
  Sender: FDA-Public Use
  Company Number: A-US2014-95609

PATIENT
  Sex: 0

DRUGS (2)
  1. OPSUMIT (MACITENTAN) TABLET [Suspect]
     Indication: PRODUCT USED FOR UNKNOWN INDICATION
     Route: 048
  2. COUMADIN (WARFARIN SODIUM) [Suspect]

REACTIONS (1)
  - Haemorrhage [None]
